FAERS Safety Report 20923019 (Version 1)
Quarter: 2022Q2

REPORT INFORMATION
  Report Type: Spontaneous
  Country: US (occurrence: US)
  Receive Date: 20220607
  Receipt Date: 20220607
  Transmission Date: 20220721
  Serious: Yes (Other)
  Sender: FDA-Public Use
  Company Number: US-BRISTOL-MYERS SQUIBB COMPANY-2022-047672

PATIENT
  Age: 68 Year
  Sex: Male
  Weight: 72.57 kg

DRUGS (1)
  1. REVLIMID [Suspect]
     Active Substance: LENALIDOMIDE
     Indication: Plasma cell myeloma
     Dosage: 3W, 1 W OFF
     Route: 048

REACTIONS (4)
  - Neuropathy peripheral [Unknown]
  - Chest discomfort [Unknown]
  - Epistaxis [Recovering/Resolving]
  - Tremor [Recovering/Resolving]
